FAERS Safety Report 20133674 (Version 2)
Quarter: 2021Q4

REPORT INFORMATION
  Report Type: Spontaneous
  Country: KR (occurrence: KR)
  Receive Date: 20211201
  Receipt Date: 20211213
  Transmission Date: 20220303
  Serious: Yes (Hospitalization, Other)
  Sender: FDA-Public Use
  Company Number: KR-Accord-246272

PATIENT
  Age: 39 Year
  Sex: Male

DRUGS (2)
  1. TACROLIMUS [Suspect]
     Active Substance: TACROLIMUS
     Indication: Immunosuppressant drug therapy
     Dosage: TWICE DAILY
  2. MYCOPHENOLATE MOFETIL [Concomitant]
     Active Substance: MYCOPHENOLATE MOFETIL
     Indication: Immunosuppressant drug therapy
     Dosage: TWICE DAILY

REACTIONS (16)
  - Bipolar disorder [Recovered/Resolved]
  - Schizophrenia [Recovered/Resolved]
  - Status epilepticus [Recovered/Resolved]
  - Intention tremor [Recovered/Resolved]
  - Disorientation [Recovered/Resolved]
  - Postural tremor [Recovered/Resolved]
  - Memory impairment [Recovered/Resolved]
  - Balance disorder [Recovered/Resolved]
  - Intellectual disability [Recovered/Resolved]
  - Ataxia [Recovered/Resolved]
  - Dysdiadochokinesis [Recovered/Resolved]
  - Action tremor [Recovered/Resolved]
  - Dysarthria [Recovered/Resolved]
  - Weight decreased [Recovered/Resolved]
  - Decreased appetite [Recovered/Resolved]
  - Somnolence [Recovered/Resolved]
